FAERS Safety Report 5808640-X (Version None)
Quarter: 2008Q3

REPORT INFORMATION
  Report Type: 
  Country: None (occurrence: None)
  Receive Date: 20080714
  Receipt Date: 20080708
  Transmission Date: 20090109
  Serious: Yes (Other)
  Sender: FDA-Public Use
  Company Number: US-AMGEN-QUU292910

PATIENT
  Age: 9 Year
  Sex: Male
  Weight: 31 kg

DRUGS (5)
  1. NEUPOGEN [Suspect]
     Indication: NEUTROPENIA
     Route: 058
     Dates: start: 20080616
  2. FLINTSTONES MULTIPLE VITAMINS [Concomitant]
  3. IRON [Concomitant]
  4. FERROUS SULFATE TAB [Concomitant]
  5. BENADRYL [Concomitant]

REACTIONS (1)
  - BLOOD CALCIUM ABNORMAL [None]
